FAERS Safety Report 5269090-0 (Version None)
Quarter: 2007Q1

REPORT INFORMATION
  Report Type: 
  Country: None (occurrence: None)
  Receive Date: 20070319
  Receipt Date: 20070308
  Transmission Date: 20070707
  Serious: Yes (Death)
  Sender: FDA-Public Use
  Company Number: FR-ROCHE-487005

PATIENT
  Age: 31 Year
  Sex: Male
  Weight: 88 kg

DRUGS (7)
  1. RIVOTRIL [Suspect]
     Indication: DRUG USE FOR UNKNOWN INDICATION
     Dosage: 40 DROPS GIVEN ON 29 + 30 OCTOBER 2006, 60 DROPS GIVEN ON 31 OCTOBER 2006, 70 DROPS GIVEN ON 02 NOV+
     Route: 048
     Dates: end: 20061104
  2. TERCIAN [Suspect]
     Indication: DRUG USE FOR UNKNOWN INDICATION
     Dosage: 40 DROPS GIVEN ON 27 OCTOBER 2006, 80 DROPS GIVEN ON 28 OCTOBER 2006, 210 DROPS GIVEN ON 29 + 30 + +
     Route: 048
     Dates: start: 20061027, end: 20061104
  3. NOCTRAN [Concomitant]
  4. SOLIAN [Concomitant]
     Route: 048
  5. THERALENE [Concomitant]
     Route: 048
  6. TERALITHE [Concomitant]
     Route: 048
  7. ATARAX [Concomitant]
     Route: 048

REACTIONS (1)
  - SLEEP APNOEA SYNDROME [None]
